FAERS Safety Report 7262469-7 (Version None)
Quarter: 2011Q1

REPORT INFORMATION
  Report Type: 
  Country: None (occurrence: None)
  Receive Date: 20110130
  Receipt Date: 20101208
  Transmission Date: 20110831
  Serious: No
  Sender: FDA-Public Use
  Company Number: US-ABBOTT-10P-163-0690452-00

PATIENT
  Age: 71 Year
  Sex: Male

DRUGS (5)
  1. LEVOTHYROXINE SODIUM [Concomitant]
     Indication: PRODUCT USED FOR UNKNOWN INDICATION
  2. BAYERA PROBIOTICS [Concomitant]
     Indication: PRODUCT USED FOR UNKNOWN INDICATION
     Dosage: DAILY
  3. IMODIUM [Concomitant]
     Indication: PRODUCT USED FOR UNKNOWN INDICATION
     Dosage: AFTER EACH STOOL
  4. HYDROCHLOROTHIAZIDE [Concomitant]
     Indication: PRODUCT USED FOR UNKNOWN INDICATION
  5. HUMIRA [Suspect]
     Indication: CROHN'S DISEASE
     Dates: start: 20100831, end: 20101123

REACTIONS (6)
  - MIGRAINE [None]
  - MUSCULOSKELETAL CHEST PAIN [None]
  - NAUSEA [None]
  - DECREASED APPETITE [None]
  - WEIGHT DECREASED [None]
  - DIARRHOEA [None]
